FAERS Safety Report 9015704 (Version 1)
Quarter: 2013Q1

REPORT INFORMATION
  Report Type: Spontaneous
  Country: GB (occurrence: None)
  Receive Date: 20130103
  Receipt Date: 20130103
  Transmission Date: 20140127
  Serious: Yes (Other)
  Sender: FDA-Public Use
  Company Number: 2012-01885

PATIENT
  Age: 32 Year
  Sex: Male
  Weight: 114 kg

DRUGS (2)
  1. QUETIAPINE [Suspect]
     Indication: PSYCHOTIC DISORDER
     Dosage: 800 MG, 1 IN 1 D
     Route: 048
     Dates: start: 200209, end: 201205
  2. OMEPRAZOLE [Concomitant]

REACTIONS (6)
  - Vision blurred [None]
  - Dry eye [None]
  - Headache [None]
  - Abdominal pain upper [None]
  - Tinnitus [None]
  - Withdrawal syndrome [None]
